FAERS Safety Report 5865856-4 (Version None)
Quarter: 2008Q3

REPORT INFORMATION
  Report Type: 
  Country: None (occurrence: None)
  Receive Date: 20080829
  Receipt Date: 20080819
  Transmission Date: 20090109
  Serious: Yes (Hospitalization)
  Sender: FDA-Public Use
  Company Number: US-ELI_LILLY_AND_COMPANY-US200801006885

PATIENT
  Sex: Female

DRUGS (3)
  1. FORTEO [Suspect]
     Indication: OSTEOPOROSIS
     Dosage: UNK, UNK
     Route: 058
     Dates: start: 20060801
  2. FORTEO [Suspect]
     Dates: end: 20080817
  3. CYMBALTA [Concomitant]

REACTIONS (3)
  - BONE DENSITY DECREASED [None]
  - NAUSEA [None]
  - PARATHYROID TUMOUR BENIGN [None]
